FAERS Safety Report 5489376-4 (Version None)
Quarter: 2007Q4

REPORT INFORMATION
  Report Type: 
  Country: None (occurrence: None)
  Receive Date: 20071005
  Receipt Date: 20070604
  Transmission Date: 20080405
  Serious: No
  Sender: FDA-Public Use
  Company Number: PHEH2007US07087

PATIENT
  Age: 74 Year
  Sex: Male

DRUGS (1)
  1. TAKTURNA(ALISKIREN) UNKNOWN [Suspect]

REACTIONS (2)
  - CARDIAC STRESS TEST NORMAL [None]
  - CHEST PAIN [None]
